FAERS Safety Report 16019897 (Version 1)
Quarter: 2019Q1

REPORT INFORMATION
  Report Type: Spontaneous
  Country: US (occurrence: US)
  Receive Date: 20190228
  Receipt Date: 20190228
  Transmission Date: 20190418
  Serious: No
  Sender: FDA-Public Use
  Company Number: PHEH2019US008180

PATIENT
  Sex: Female

DRUGS (3)
  1. ZOFRAN [Suspect]
     Active Substance: ONDANSETRON HYDROCHLORIDE
     Indication: DYSGEUSIA
  2. METFORMINE ZYDUS [Suspect]
     Active Substance: METFORMIN HYDROCHLORIDE
     Indication: CHRONIC LEUKAEMIA
     Dosage: 500 MG, UNK
     Route: 048
     Dates: start: 2017
  3. ZOFRAN [Suspect]
     Active Substance: ONDANSETRON HYDROCHLORIDE
     Indication: NAUSEA
     Dosage: UNK
     Route: 065

REACTIONS (2)
  - White blood cell count increased [Unknown]
  - Drug ineffective [Recovered/Resolved]
